FAERS Safety Report 25456443 (Version 1)
Quarter: 2025Q2

REPORT INFORMATION
  Report Type: Spontaneous
  Country: US (occurrence: US)
  Receive Date: 20250619
  Receipt Date: 20250619
  Transmission Date: 20250717
  Serious: No
  Sender: ROCHE
  Company Number: US-ROCHE-10000314769

PATIENT
  Sex: Male
  Weight: 34.56 kg

DRUGS (1)
  1. HEMLIBRA [Suspect]
     Active Substance: EMICIZUMAB-KXWH
     Indication: Factor VIII deficiency
     Dosage: LAST RECEIVED DOSE 14-JUN-2025
     Route: 058

REACTIONS (1)
  - Heart rate increased [Not Recovered/Not Resolved]
